FAERS Safety Report 18135786 (Version 1)
Quarter: 2020Q3

REPORT INFORMATION
  Report Type: Report from Study
  Country: US (occurrence: US)
  Receive Date: 20200811
  Receipt Date: 20200811
  Transmission Date: 20201103
  Serious: Yes (Other)
  Sender: FDA-Public Use
  Company Number: US-BAYER-2020-158281

PATIENT
  Age: 77 Year
  Sex: Female
  Weight: 68.93 kg

DRUGS (4)
  1. ELIQUIS [Concomitant]
     Active Substance: APIXABAN
     Dosage: UNK
  2. ADEMPAS [Suspect]
     Active Substance: RIOCIGUAT
     Indication: PULMONARY ARTERIAL HYPERTENSION
     Dosage: 2.0 MG, TID
     Route: 048
     Dates: start: 20200721
  3. ADEMPAS [Suspect]
     Active Substance: RIOCIGUAT
     Indication: PULMONARY ARTERIAL HYPERTENSION
     Dosage: UNK
  4. ADEMPAS [Suspect]
     Active Substance: RIOCIGUAT
     Indication: PULMONARY ARTERIAL HYPERTENSION
     Dosage: 2.0 MG, BID
     Route: 048
     Dates: start: 2020

REACTIONS (8)
  - Chest discomfort [Unknown]
  - Hypoacusis [None]
  - Tinnitus [Unknown]
  - Chest pain [Unknown]
  - Deafness unilateral [None]
  - Anxiety [None]
  - Dizziness [Unknown]
  - Inappropriate schedule of product administration [None]

NARRATIVE: CASE EVENT DATE: 2020
